FAERS Safety Report 5295471-5 (Version None)
Quarter: 2007Q2

REPORT INFORMATION
  Report Type: 
  Country: None (occurrence: None)
  Receive Date: 20070412
  Receipt Date: 20070403
  Transmission Date: 20071010
  Serious: Yes (Hospitalization, Other)
  Sender: FDA-Public Use
  Company Number: JP-MERCK-0703USA02417

PATIENT
  Age: 73 Year
  Sex: Male

DRUGS (5)
  1. PEPCID RPD [Suspect]
     Indication: DUODENAL ULCER
     Route: 048
     Dates: start: 20061207, end: 20070201
  2. CEFOPERAZONE SODIUM AND SULBACTAM SODIUM [Concomitant]
     Route: 065
  3. POLAPREZINC [Concomitant]
     Route: 065
  4. ALLOPURINOL [Concomitant]
     Route: 065
  5. AMLODIPINE BESYLATE [Concomitant]
     Route: 065

REACTIONS (2)
  - BLOOD BILIRUBIN INCREASED [None]
  - CHOLECYSTITIS [None]
